FAERS Safety Report 8858471 (Version 1)
Quarter: 2012Q4

REPORT INFORMATION
  Report Type: 
  Country: FR (occurrence: FR)
  Receive Date: 20121025
  Receipt Date: 20121025
  Transmission Date: 20130627
  Serious: Yes (Hospitalization)
  Sender: FDA-Public Use
  Company Number: FR-AMGEN-FRASP2012067448

PATIENT
  Age: 79 Year
  Sex: Female

DRUGS (7)
  1. ENBREL [Suspect]
     Indication: RHEUMATOID ARTHRITIS
     Dosage: 50 mg, 1x/day
     Route: 058
     Dates: start: 2008, end: 201207
  2. LEVEMIR [Concomitant]
     Dosage: UNK UNK, UNK
  3. HUMALOG [Concomitant]
     Dosage: UNK UNK, UNK
  4. STAGID [Concomitant]
     Dosage: UNK UNK, UNK
  5. INIPOMP [Concomitant]
     Dosage: UNK UNK, UNK
  6. DIFFU K [Concomitant]
     Dosage: UNK
  7. COAPROVEL [Concomitant]
     Dosage: UNK UNK, UNK

REACTIONS (3)
  - Renal cancer [Not Recovered/Not Resolved]
  - Microcytic anaemia [Unknown]
  - Nodule [Unknown]
